FAERS Safety Report 19687317 (Version 1)
Quarter: 2021Q3

REPORT INFORMATION
  Report Type: Spontaneous
  Country: US (occurrence: US)
  Receive Date: 20210811
  Receipt Date: 20210811
  Transmission Date: 20211014
  Serious: No
  Sender: FDA-Public Use
  Company Number: US-PFIZER INC-2021450488

PATIENT
  Age: 82 Year
  Sex: Female

DRUGS (1)
  1. BOSUTINIB [Suspect]
     Active Substance: BOSUTINIB
     Indication: DISEASE RECURRENCE
     Dosage: UNK
     Dates: end: 201909

REACTIONS (1)
  - Pleural effusion [Unknown]
